FAERS Safety Report 24612363 (Version 1)
Quarter: 2024Q4

REPORT INFORMATION
  Report Type: Spontaneous
  Country: BG (occurrence: None)
  Receive Date: 20241113
  Receipt Date: 20241113
  Transmission Date: 20250114
  Serious: Yes (Other)
  Sender: UNICHEM
  Company Number: BG-Unichem Pharmaceuticals (USA) Inc-UCM202411-001521

PATIENT
  Age: 87 Year
  Sex: Female

DRUGS (13)
  1. BISOPROLOL FUMARATE [Suspect]
     Active Substance: BISOPROLOL FUMARATE
     Indication: Hypertension
  2. LISINOPRIL AND HYDROCHLOROTHIAZIDE [Suspect]
     Active Substance: HYDROCHLOROTHIAZIDE\LISINOPRIL
     Indication: Hypertension
     Dosage: 20 MG/12.5 MG
  3. LISINOPRIL AND HYDROCHLOROTHIAZIDE [Suspect]
     Active Substance: HYDROCHLOROTHIAZIDE\LISINOPRIL
     Dosage: 20 MG/12.5 MG, HALF A TABLET
  4. PROPAFENONE [Suspect]
     Active Substance: PROPAFENONE
     Indication: Hypertension
  5. PROPAFENONE [Suspect]
     Active Substance: PROPAFENONE
  6. CARBAMAZEPINE [Concomitant]
     Active Substance: CARBAMAZEPINE
     Indication: Trigeminal neuralgia
  7. Benfotiamine/Pyridoxine hydrochloride [Concomitant]
     Indication: Trigeminal neuralgia
     Dosage: UNKNOWN
  8. CYANOCOBALAMIN [Concomitant]
     Active Substance: CYANOCOBALAMIN
     Indication: Trigeminal neuralgia
     Dosage: UNKNOWN
  9. CIPROFLOXACIN [Concomitant]
     Active Substance: CIPROFLOXACIN
     Indication: Product used for unknown indication
  10. POVIDONE-IODINE [Concomitant]
     Active Substance: POVIDONE-IODINE
     Indication: Skin lesion
     Dosage: UNKNOWN
     Route: 061
  11. SODIUM CHLORIDE [Concomitant]
     Active Substance: SODIUM CHLORIDE
     Indication: Skin lesion
  12. METAMIZOLE SODIUM [Concomitant]
     Active Substance: METAMIZOLE SODIUM
     Indication: Pain management
     Dosage: UNKNOWN
  13. LIDOCAINE [Concomitant]
     Active Substance: LIDOCAINE
     Indication: Local anaesthesia

REACTIONS (2)
  - Neoplasm skin [Recovered/Resolved]
  - Product contamination [Unknown]
